FAERS Safety Report 15246458 (Version 1)
Quarter: 2018Q3

REPORT INFORMATION
  Report Type: Spontaneous
  Country: US (occurrence: US)
  Receive Date: 20180806
  Receipt Date: 20180806
  Transmission Date: 20181010
  Serious: Yes (Other)
  Sender: FDA-Public Use
  Company Number: US-SA-2018SA207972

PATIENT
  Age: 64 Year
  Sex: Male

DRUGS (1)
  1. SOLIQUA 100/33 [Suspect]
     Active Substance: INSULIN GLARGINE\LIXISENATIDE
     Indication: DIABETES MELLITUS
     Dosage: 40 IU, BID
     Dates: start: 20180718, end: 20180719

REACTIONS (3)
  - Blood glucose decreased [Unknown]
  - Accident [Unknown]
  - Head discomfort [Unknown]
